FAERS Safety Report 13527717 (Version 1)
Quarter: 2017Q2

REPORT INFORMATION
  Report Type: Report from Study
  Country: AT (occurrence: AT)
  Receive Date: 20170509
  Receipt Date: 20170509
  Transmission Date: 20170830
  Serious: Yes (Hospitalization)
  Sender: FDA-Public Use
  Company Number: AT-INCYTE CORPORATION-2016IN007532

PATIENT
  Age: 50 Year
  Sex: Male
  Weight: 57.6 kg

DRUGS (2)
  1. JAKAVI [Suspect]
     Active Substance: RUXOLITINIB
     Indication: MYELOFIBROSIS
     Dosage: 40 MG, QD
     Route: 048
     Dates: start: 20131029, end: 20140921
  2. JAKAVI [Suspect]
     Active Substance: RUXOLITINIB
     Dosage: 15 MG, UNK
     Route: 048
     Dates: start: 20140930, end: 20141009

REACTIONS (5)
  - Blood lactate dehydrogenase increased [Unknown]
  - Folliculitis [Unknown]
  - General physical health deterioration [Recovered/Resolved]
  - Ophthalmic herpes zoster [Recovered/Resolved]
  - C-reactive protein increased [Recovered/Resolved]

NARRATIVE: CASE EVENT DATE: 2014
